FAERS Safety Report 12068585 (Version 1)
Quarter: 2016Q1

REPORT INFORMATION
  Report Type: Spontaneous
  Country: CN (occurrence: CN)
  Receive Date: 20160211
  Receipt Date: 20160211
  Transmission Date: 20160526
  Serious: Yes (Death, Other)
  Sender: FDA-Public Use
  Company Number: CN-BRISTOL-MYERS SQUIBB COMPANY-13568639

PATIENT

DRUGS (1)
  1. NYSTATIN. [Suspect]
     Active Substance: NYSTATIN
     Indication: PRODUCT USED FOR UNKNOWN INDICATION
     Dosage: 100000 IU, QD
     Route: 064

REACTIONS (2)
  - Foetal growth restriction [Fatal]
  - Foetal exposure during pregnancy [Recovered/Resolved]
